FAERS Safety Report 8210699-X (Version None)
Quarter: 2012Q1

REPORT INFORMATION
  Report Type: 
  Country: None (occurrence: None)
  Receive Date: 20120314
  Receipt Date: 20120305
  Transmission Date: 20120608
  Serious: Yes (Hospitalization, Other)
  Sender: FDA-Public Use
  Company Number: US-MYLANLABS-2012S1005441

PATIENT
  Sex: Male

DRUGS (45)
  1. COZAAR [Concomitant]
  2. LEVEMIR [Concomitant]
  3. LIPITOR [Concomitant]
  4. NICODERM [Concomitant]
  5. YOHIMBINE [Concomitant]
  6. DIGOXIN [Suspect]
     Route: 048
     Dates: start: 20050106, end: 20080904
  7. ADVICOR [Concomitant]
  8. AUGMENTIN '125' [Concomitant]
  9. DILTIAZEM HCL [Concomitant]
  10. PROMETHAZINE [Concomitant]
  11. PROPAFENONE HYDROCHLORIDE [Concomitant]
  12. UROXATRAL [Concomitant]
  13. CHANTIX [Concomitant]
  14. NITRO-DUR [Concomitant]
  15. TEMAZEPAM [Concomitant]
  16. TOPROL-XL [Concomitant]
  17. ALTACE [Concomitant]
  18. ISOSORBIDE MONONITRATE [Concomitant]
     Dosage: ISORDIL
  19. LOPRESSOR [Concomitant]
  20. METOLAZONE [Concomitant]
  21. PALGIC [Concomitant]
  22. ZOFRAN [Concomitant]
  23. ATENOLOL [Concomitant]
  24. CRESTOR [Concomitant]
  25. OXYCODONE HCL AND ACETAMINOPHEN [Concomitant]
  26. PREVACID [Concomitant]
  27. TORSEMIDE [Concomitant]
  28. ALDACTONE [Concomitant]
  29. METFORMIN [Concomitant]
  30. TRICOR [Concomitant]
  31. CARVEDILOL [Concomitant]
  32. LASIX [Concomitant]
  33. LOPID [Concomitant]
  34. LYRICA [Concomitant]
  35. MAXZIDE [Concomitant]
  36. NITROGLYCERIN [Concomitant]
  37. NORVASC [Concomitant]
  38. ANTARA (MICRONIZED) [Concomitant]
  39. GLUCOPHAGE [Concomitant]
  40. HUMALOG [Concomitant]
  41. PULMICORT [Concomitant]
  42. RANEXA [Concomitant]
  43. ROCEPHIN [Concomitant]
  44. SPIRIVA [Concomitant]
  45. VICOPROFEN [Concomitant]

REACTIONS (41)
  - MALAISE [None]
  - PYREXIA [None]
  - HYPERLIPIDAEMIA [None]
  - CATHETERISATION CARDIAC [None]
  - PALPITATIONS [None]
  - DYSPNOEA [None]
  - FATIGUE [None]
  - COUGH [None]
  - BACK PAIN [None]
  - RENAL FAILURE [None]
  - ARTHRALGIA [None]
  - OEDEMA PERIPHERAL [None]
  - TRICUSPID VALVE INCOMPETENCE [None]
  - ASTHENIA [None]
  - RENAL ARTERY STENOSIS [None]
  - X-RAY ABNORMAL [None]
  - LYMPHANGITIS [None]
  - CHILLS [None]
  - CORONARY ARTERY DISEASE [None]
  - ELECTROCARDIOGRAM ABNORMAL [None]
  - OESOPHAGOGASTRODUODENOSCOPY [None]
  - ARTHROPOD BITE [None]
  - HIATUS HERNIA [None]
  - CARDIAC STRESS TEST ABNORMAL [None]
  - COMPUTERISED TOMOGRAM ABNORMAL [None]
  - LABORATORY TEST ABNORMAL [None]
  - CHEST PAIN [None]
  - ANAEMIA [None]
  - ATRIAL FIBRILLATION [None]
  - CELLULITIS [None]
  - ABDOMINAL PAIN [None]
  - HYPERGLYCAEMIA [None]
  - HYPONATRAEMIA [None]
  - ANGINA PECTORIS [None]
  - EXTRASYSTOLES [None]
  - NAUSEA [None]
  - HYPOTENSION [None]
  - CHEST DISCOMFORT [None]
  - THROMBOCYTOPENIA [None]
  - PAIN IN EXTREMITY [None]
  - ERYTHEMA [None]
